FAERS Safety Report 5608560-X (Version None)
Quarter: 2008Q1

REPORT INFORMATION
  Report Type: 
  Country: None (occurrence: None)
  Receive Date: 20080125
  Receipt Date: 20080110
  Transmission Date: 20080703
  Serious: Yes (Hospitalization, Disabling, Other)
  Sender: FDA-Public Use
  Company Number: A-CH2007-18725

PATIENT
  Age: 82 Year
  Sex: Male
  Weight: 70 kg

DRUGS (9)
  1. TRACLEER [Suspect]
     Indication: PULMONARY HYPERTENSION
     Dosage: 62.5 MG, BID, ORAL
     Route: 048
     Dates: start: 20071018
  2. ACETYLSALICYLIC ACID SRT [Suspect]
  3. CLOPIDOGREL [Suspect]
  4. CONCOR (BISOPROLOL FUMARATE) [Concomitant]
  5. AQUAPHOR (XIPAMIDE) [Concomitant]
  6. ENALAPRIL MALEATE [Concomitant]
  7. TOREM (TORASEMIDE) [Concomitant]
  8. DUSODRIL (NAFTIDROFURYL OXALATE) [Concomitant]
  9. INSUMAN COMB (INSULIN HUMAN, PROTAMINE) [Concomitant]

REACTIONS (5)
  - GASTRITIS EROSIVE [None]
  - GASTROOESOPHAGEAL REFLUX DISEASE [None]
  - GENERAL PHYSICAL HEALTH DETERIORATION [None]
  - HAEMORRHAGIC ANAEMIA [None]
  - PROSTATE CANCER [None]
